FAERS Safety Report 18093783 (Version 1)
Quarter: 2020Q3

REPORT INFORMATION
  Report Type: Spontaneous
  Country: TR (occurrence: TR)
  Receive Date: 20200730
  Receipt Date: 20200730
  Transmission Date: 20201103
  Serious: Yes (Hospitalization)
  Sender: FDA-Public Use
  Company Number: TR-GLAXOSMITHKLINE-TR2020TRK123852

PATIENT
  Age: 80 Year
  Sex: Female

DRUGS (10)
  1. EFEXOR [Suspect]
     Active Substance: VENLAFAXINE HYDROCHLORIDE
     Indication: AFFECTIVE DISORDER
     Dosage: 150 MG
  2. NOVORAPID [Suspect]
     Active Substance: INSULIN ASPART
     Indication: PRODUCT USED FOR UNKNOWN INDICATION
     Dosage: UNK
  3. LUSTRAL [Suspect]
     Active Substance: SERTRALINE HYDROCHLORIDE
     Indication: AFFECTIVE DISORDER
  4. LANTUS [Suspect]
     Active Substance: INSULIN GLARGINE
     Indication: PRODUCT USED FOR UNKNOWN INDICATION
     Dosage: UNK
  5. DELIX [Concomitant]
     Indication: HYPERTENSION
     Dosage: UNK UNK, QD, QUARTER TABLET
  6. EFEXOR [Suspect]
     Active Substance: VENLAFAXINE HYDROCHLORIDE
     Indication: DEPRESSION
  7. LAMICTAL [Suspect]
     Active Substance: LAMOTRIGINE
     Indication: AFFECTIVE DISORDER
     Dosage: 1 DF, BID, 50 MG
     Dates: start: 201711
  8. LAMICTAL [Suspect]
     Active Substance: LAMOTRIGINE
     Dosage: 2 DF, BID, 50 MG
     Dates: start: 201711
  9. REMERON [Suspect]
     Active Substance: MIRTAZAPINE
     Indication: EPILEPSY
     Dosage: UNK UNK, QD, 0.25 DF (QUARTER TABLET)
  10. LUSTRAL [Suspect]
     Active Substance: SERTRALINE HYDROCHLORIDE
     Indication: DEPRESSION
     Dosage: 100 MG

REACTIONS (5)
  - Somnolence [Unknown]
  - Incorrect product administration duration [Unknown]
  - Blood pressure increased [Recovering/Resolving]
  - Balance disorder [Unknown]
  - Treatment noncompliance [Unknown]
